FAERS Safety Report 12054631 (Version 1)
Quarter: 2016Q1

REPORT INFORMATION
  Report Type: Report from Study
  Country: US (occurrence: US)
  Receive Date: 20160209
  Receipt Date: 20160209
  Transmission Date: 20160526
  Serious: No
  Sender: FDA-Public Use
  Company Number: US-ABBVIE-15P-163-1462475-00

PATIENT
  Age: 60 Year
  Sex: Female

DRUGS (1)
  1. HUMIRA [Suspect]
     Active Substance: ADALIMUMAB
     Indication: RHEUMATOID ARTHRITIS
     Route: 065

REACTIONS (7)
  - Device issue [Unknown]
  - Overdose [Unknown]
  - Injection site bruising [Unknown]
  - Injection site rash [Recovered/Resolved]
  - Injection site erythema [Recovered/Resolved]
  - Incorrect dose administered [Unknown]
  - Injection site reaction [Unknown]

NARRATIVE: CASE EVENT DATE: 2015
